FAERS Safety Report 22535372 (Version 13)
Quarter: 2025Q3

REPORT INFORMATION
  Report Type: Report from Study
  Country: CA (occurrence: CA)
  Receive Date: 20230608
  Receipt Date: 20250919
  Transmission Date: 20251021
  Serious: Yes (Other)
  Sender: TAKEDA
  Company Number: CA-TAKEDA-2021TUS053320

PATIENT
  Sex: Female

DRUGS (41)
  1. VEDOLIZUMAB [Suspect]
     Active Substance: VEDOLIZUMAB
     Indication: Crohn^s disease
  2. VEDOLIZUMAB [Suspect]
     Active Substance: VEDOLIZUMAB
  3. VEDOLIZUMAB [Suspect]
     Active Substance: VEDOLIZUMAB
  4. VEDOLIZUMAB [Suspect]
     Active Substance: VEDOLIZUMAB
     Dosage: 300 MILLIGRAM, Q4WEEKS
     Dates: start: 20210908
  5. VEDOLIZUMAB [Suspect]
     Active Substance: VEDOLIZUMAB
     Dosage: 300 MILLIGRAM, Q4WEEKS
  6. VEDOLIZUMAB [Suspect]
     Active Substance: VEDOLIZUMAB
     Dosage: 300 MILLIGRAM, Q4WEEKS
  7. VEDOLIZUMAB [Suspect]
     Active Substance: VEDOLIZUMAB
     Dosage: 300 MILLIGRAM, Q4WEEKS
  8. VEDOLIZUMAB [Suspect]
     Active Substance: VEDOLIZUMAB
     Dosage: 300 MILLIGRAM, Q4WEEKS
  9. VEDOLIZUMAB [Suspect]
     Active Substance: VEDOLIZUMAB
     Dosage: 300 MILLIGRAM, Q4WEEKS
  10. VEDOLIZUMAB [Suspect]
     Active Substance: VEDOLIZUMAB
     Dosage: 300 MILLIGRAM, Q4WEEKS
  11. VEDOLIZUMAB [Suspect]
     Active Substance: VEDOLIZUMAB
     Dosage: 300 MILLIGRAM, Q4WEEKS
  12. VEDOLIZUMAB [Suspect]
     Active Substance: VEDOLIZUMAB
     Dosage: 300 MILLIGRAM, Q4WEEKS
  13. VEDOLIZUMAB [Suspect]
     Active Substance: VEDOLIZUMAB
     Dosage: 300 MILLIGRAM, Q4WEEKS
  14. VEDOLIZUMAB [Suspect]
     Active Substance: VEDOLIZUMAB
     Dosage: 300 MILLIGRAM, Q4WEEKS
  15. VEDOLIZUMAB [Suspect]
     Active Substance: VEDOLIZUMAB
     Dosage: 300 MILLIGRAM, Q4WEEKS
  16. COCAINE [Suspect]
     Active Substance: COCAINE
     Indication: Product used for unknown indication
  17. ENTOCORT [Concomitant]
     Active Substance: BUDESONIDE
  18. EDOXABAN TOSYLATE [Concomitant]
     Active Substance: EDOXABAN TOSYLATE
  19. BUPROPION [Concomitant]
     Active Substance: BUPROPION
  20. VALACYCLOVIR [Concomitant]
     Active Substance: VALACYCLOVIR HYDROCHLORIDE
  21. LETROZOLE [Concomitant]
     Active Substance: LETROZOLE
  22. OXAZEPAM [Concomitant]
     Active Substance: OXAZEPAM
     Dosage: 30 MILLIGRAM, QID
     Dates: start: 20250502
  23. ALBUTEROL [Concomitant]
     Active Substance: ALBUTEROL
  24. PANTOPRAZOLE [Concomitant]
     Active Substance: PANTOPRAZOLE
  25. ZOPICLONE [Concomitant]
     Active Substance: ZOPICLONE
  26. SOLIFENACIN [Concomitant]
     Active Substance: SOLIFENACIN
  27. ATROVENT [Concomitant]
     Active Substance: IPRATROPIUM BROMIDE
  28. GABAPENTIN [Concomitant]
     Active Substance: GABAPENTIN
  29. GABAPENTIN [Concomitant]
     Active Substance: GABAPENTIN
     Dosage: 600 MILLIGRAM, TID
     Dates: start: 20250508
  30. BILASTINE [Concomitant]
     Active Substance: BILASTINE
  31. SYMBICORT [Concomitant]
     Active Substance: BUDESONIDE\FORMOTEROL FUMARATE DIHYDRATE
  32. POLYETHYLENE GLYCOL 3350 [Concomitant]
     Active Substance: POLYETHYLENE GLYCOL 3350
     Dosage: UNK UNK, QD
  33. Dulcolax [Concomitant]
  34. ALIGN [Concomitant]
     Active Substance: BIFIDOBACTERIUM LONGUM SUBSP. INFANTIS
  35. MOMETASONE [Concomitant]
     Active Substance: MOMETASONE
  36. CLODRONATE DISODIUM [Concomitant]
     Active Substance: CLODRONATE DISODIUM
  37. QUETIAPINE [Concomitant]
     Active Substance: QUETIAPINE
  38. FERROUS FUMARATE [Concomitant]
     Active Substance: FERROUS FUMARATE
  39. Fucidin h [Concomitant]
     Route: 061
  40. SYNTHROID [Concomitant]
     Active Substance: LEVOTHYROXINE SODIUM
  41. CYCLOBENZAPRINE [Concomitant]
     Active Substance: CYCLOBENZAPRINE
     Dosage: 10 MILLIGRAM, QD
     Dates: start: 20250410

REACTIONS (27)
  - Cancer pain [Unknown]
  - Dehydration [Recovered/Resolved]
  - Illness [Recovered/Resolved]
  - Insomnia [Recovered/Resolved]
  - Hypophagia [Recovered/Resolved]
  - Drug dependence [Unknown]
  - Flank pain [Unknown]
  - Drug level decreased [Recovering/Resolving]
  - Product dose omission issue [Recovered/Resolved]
  - Productive cough [Recovering/Resolving]
  - Liver disorder [Not Recovered/Not Resolved]
  - Localised infection [Unknown]
  - Feeling hot [Recovered/Resolved]
  - Substance use [Recovered/Resolved]
  - Peripheral swelling [Recovered/Resolved]
  - Induration [Recovered/Resolved]
  - Off label use [Unknown]
  - Erythema [Recovered/Resolved]
  - Vomiting [Unknown]
  - Abdominal distension [Not Recovered/Not Resolved]
  - Constipation [Recovering/Resolving]
  - Fatigue [Not Recovered/Not Resolved]
  - Bronchitis [Not Recovered/Not Resolved]
  - Sputum discoloured [Recovering/Resolving]
  - Dyspnoea [Recovering/Resolving]
  - Cough [Not Recovered/Not Resolved]
  - Pain in extremity [Recovered/Resolved]

NARRATIVE: CASE EVENT DATE: 20210101
